FAERS Safety Report 6177935-5 (Version None)
Quarter: 2009Q2

REPORT INFORMATION
  Report Type: 
  Country: None (occurrence: None)
  Receive Date: 20090504
  Receipt Date: 20090427
  Transmission Date: 20091009
  Serious: Yes (Other)
  Sender: FDA-Public Use
  Company Number: US-MERCK-0904USA04431

PATIENT
  Sex: Female

DRUGS (2)
  1. DOLOBID [Suspect]
     Route: 048
  2. LYRICA [Suspect]
     Route: 065

REACTIONS (3)
  - GASTRIC DISORDER [None]
  - HAEMATEMESIS [None]
  - OEDEMA PERIPHERAL [None]
